FAERS Safety Report 5300292-0 (Version None)
Quarter: 2007Q2

REPORT INFORMATION
  Report Type: 
  Country: None (occurrence: None)
  Receive Date: 20070410
  Receipt Date: 20070326
  Transmission Date: 20071010
  Serious: Yes (Other)
  Sender: FDA-Public Use
  Company Number: GXKR2007GB02845

PATIENT
  Sex: Male

DRUGS (1)
  1. CITALOPRAM SANDOZ (NGX) (CITALOPRAM) UNKNOWN [Suspect]
     Indication: DEPRESSION
     Dosage: ORAL
     Route: 048

REACTIONS (4)
  - AGGRESSION [None]
  - DEPRESSED MOOD [None]
  - DISORIENTATION [None]
  - HOMICIDE [None]
